FAERS Safety Report 5923182-9 (Version None)
Quarter: 2008Q4

REPORT INFORMATION
  Report Type: 
  Country: None (occurrence: None)
  Receive Date: 20081015
  Receipt Date: 20080930
  Transmission Date: 20090506
  Serious: Yes (Hospitalization, Other)
  Sender: FDA-Public Use
  Company Number: 2008S1017693

PATIENT
  Age: 36 Year
  Sex: Female

DRUGS (2)
  1. TAMOXIFEN CITRATE [Suspect]
     Indication: BREAST CANCER RECURRENT
     Dates: start: 20040101
  2. MEDROXYPROGESTERONE [Suspect]
     Indication: METASTASES TO BONE
     Dates: start: 20050401

REACTIONS (6)
  - ACUTE PROMYELOCYTIC LEUKAEMIA [None]
  - GINGIVAL BLEEDING [None]
  - LYMPH NODE PAIN [None]
  - MALIGNANT NEOPLASM PROGRESSION [None]
  - METASTASES TO BONE [None]
  - PANCYTOPENIA [None]
